FAERS Safety Report 11058197 (Version 1)
Quarter: 2015Q2

REPORT INFORMATION
  Report Type: Spontaneous
  Country: US (occurrence: None)
  Receive Date: 20150421
  Receipt Date: 20150421
  Transmission Date: 20150821
  Serious: Yes (Other)
  Sender: FDA-Public Use
  Company Number: US-2015VAL000263

PATIENT
  Age: 77 Year
  Sex: Male
  Weight: 73.5 kg

DRUGS (2)
  1. METOPROLOL TARTRATE (METOPROLOL TARTRATE) UNKNOWN [Suspect]
     Active Substance: METOPROLOL TARTRATE
     Indication: OFF LABEL USE
     Dates: start: 2013
  2. METOPROLOL TARTRATE (METOPROLOL TARTRATE) UNKNOWN [Suspect]
     Active Substance: METOPROLOL TARTRATE
     Indication: ATRIAL FIBRILLATION
     Dates: start: 2013

REACTIONS (3)
  - Drug ineffective [None]
  - Atrial fibrillation [None]
  - Heart rate irregular [None]
